FAERS Safety Report 6318335-4 (Version None)
Quarter: 2009Q3

REPORT INFORMATION
  Report Type: 
  Country: None (occurrence: None)
  Receive Date: 20090821
  Receipt Date: 20090810
  Transmission Date: 20100115
  Serious: Yes (Other)
  Sender: FDA-Public Use
  Company Number: US-PFIZER INC-2009254226

PATIENT
  Sex: Female
  Weight: 99.79 kg

DRUGS (11)
  1. CHANTIX [Suspect]
     Indication: SMOKING CESSATION THERAPY
     Dates: start: 20090510
  2. SYNTHROID [Concomitant]
  3. PRAVASTATIN [Concomitant]
  4. BENAZEPRIL HYDROCHLORIDE [Concomitant]
  5. PLAVIX [Concomitant]
  6. CARVEDILOL [Concomitant]
  7. CYMBALTA [Concomitant]
  8. FUROSEMIDE [Concomitant]
  9. ADVAIR HFA [Concomitant]
  10. SPIRIVA [Concomitant]
  11. TYLENOL (CAPLET) [Concomitant]

REACTIONS (1)
  - DEPRESSION [None]
